FAERS Safety Report 14157036 (Version 1)
Quarter: 2017Q4

REPORT INFORMATION
  Report Type: Spontaneous
  Country: US (occurrence: US)
  Receive Date: 20171103
  Receipt Date: 20171103
  Transmission Date: 20180321
  Serious: No
  Sender: FDA-Public Use
  Company Number: None

PATIENT
  Age: 57 Year
  Sex: Female

DRUGS (1)
  1. OPTISON [Suspect]
     Active Substance: ALBUMIN HUMAN
     Indication: IMAGING PROCEDURE
     Route: 040
     Dates: start: 20171103, end: 20171103

REACTIONS (3)
  - Contrast media reaction [None]
  - Injection site pain [None]
  - Pallor [None]

NARRATIVE: CASE EVENT DATE: 20171103
